FAERS Safety Report 9419158 (Version 1)
Quarter: 2013Q3

REPORT INFORMATION
  Report Type: Spontaneous
  Country: US (occurrence: US)
  Receive Date: 20130725
  Receipt Date: 20130725
  Transmission Date: 20140515
  Serious: No
  Sender: FDA-Public Use
  Company Number: US-009507513-1307USA013738

PATIENT
  Sex: Female
  Weight: 49.89 kg

DRUGS (2)
  1. COPPERTONE WATER BABIES LOTION SPF-50 [Suspect]
     Indication: HEAVY EXPOSURE TO ULTRAVIOLET LIGHT
     Dosage: UNK, QD
     Route: 048
  2. COPPERTONE WATER BABIES LOTION SPF-50 [Suspect]
     Indication: MEDICAL OBSERVATION

REACTIONS (2)
  - Sunburn [Unknown]
  - Expired drug administered [Unknown]
